FAERS Safety Report 4358522-8 (Version None)
Quarter: 2004Q2

REPORT INFORMATION
  Report Type: 
  Country: None (occurrence: None)
  Receive Date: 20040514
  Receipt Date: 20040511
  Transmission Date: 20050107
  Serious: Yes (Hospitalization)
  Sender: FDA-Public Use
  Company Number: FR-GLAXOSMITHKLINE-B0332412A

PATIENT
  Age: 37 Year
  Sex: Male
  Weight: 57 kg

DRUGS (5)
  1. ZINNAT [Suspect]
     Indication: UPPER RESPIRATORY TRACT INFECTION
     Route: 048
     Dates: start: 20040409, end: 20040416
  2. TOPALGIC ( FRANCE ) [Suspect]
     Dosage: 200MG PER DAY
     Route: 048
     Dates: start: 20040419, end: 20040419
  3. HYDROCORTISONE [Concomitant]
     Dosage: 2.5MG TWICE PER DAY
     Route: 048
  4. VIRAMUNE [Concomitant]
     Indication: HIV INFECTION
     Dosage: 1TAB TWICE PER DAY
     Route: 048
     Dates: start: 20031128
  5. KALETRA [Concomitant]
     Indication: HIV INFECTION
     Dosage: 4CAP TWICE PER DAY
     Route: 048
     Dates: start: 20031128

REACTIONS (4)
  - ALANINE AMINOTRANSFERASE INCREASED [None]
  - ASPARTATE AMINOTRANSFERASE INCREASED [None]
  - BLOOD BILIRUBIN INCREASED [None]
  - GAMMA-GLUTAMYLTRANSFERASE INCREASED [None]
